FAERS Safety Report 7884404-0 (Version None)
Quarter: 2011Q4

REPORT INFORMATION
  Report Type: 
  Country: None (occurrence: None)
  Receive Date: 20111102
  Receipt Date: 20110707
  Transmission Date: 20120403
  Serious: No
  Sender: FDA-Public Use
  Company Number: US-ASTRAZENECA-2011SE40544

PATIENT
  Age: 65 Year
  Sex: Male

DRUGS (9)
  1. VANDETANIB [Suspect]
     Indication: THYROID CANCER
     Route: 048
  2. LYRICA [Concomitant]
     Route: 048
  3. LOMOTIL [Concomitant]
     Dosage: 2.5-0.25 MG DAILY
     Route: 048
  4. SYNTHROID [Concomitant]
     Route: 048
  5. MORPHINE SULFATE [Concomitant]
     Route: 048
  6. CALCIUM +D [Concomitant]
     Dosage: 250-125 MG BID
     Route: 048
  7. ZONEGRAN [Concomitant]
     Route: 048
  8. FENTANYL [Concomitant]
     Route: 050
  9. MEGESTROL ACETATE [Concomitant]
     Dosage: 800MG/20ML DAILY
     Route: 048

REACTIONS (4)
  - WHEEZING [None]
  - TREMOR [None]
  - MUSCULOSKELETAL PAIN [None]
  - PAIN IN EXTREMITY [None]
